FAERS Safety Report 9561755 (Version 7)
Quarter: 2014Q3

REPORT INFORMATION
  Report Type: Report from Study
  Country: MY (occurrence: MY)
  Receive Date: 20130927
  Receipt Date: 20140808
  Transmission Date: 20150326
  Serious: Yes (Hospitalization)
  Sender: FDA-Public Use
  Company Number: MY-009507513-1309MYS003930

PATIENT
  Age: 52 Year
  Sex: Female
  Weight: 49.2 kg

DRUGS (25)
  1. ACETAMINOPHEN. [Concomitant]
     Active Substance: ACETAMINOPHEN
     Indication: PYREXIA
     Dosage: TOTAL DAILY DOSE: 650 MG, PRN
     Route: 048
     Dates: start: 20130711
  2. BOCEPREVIR [Suspect]
     Active Substance: BOCEPREVIR
     Dosage: 4 CAPSULES, BID
     Route: 048
     Dates: start: 20130825, end: 20130825
  3. RIBAVIRIN. [Suspect]
     Active Substance: RIBAVIRIN
     Dosage: 1 DF, QPM
     Route: 048
     Dates: start: 20130905, end: 20130908
  4. BOCEPREVIR [Suspect]
     Active Substance: BOCEPREVIR
     Indication: CHRONIC HEPATITIS C
     Dosage: 4 CAPSULES, TID
     Route: 048
     Dates: start: 20130821, end: 20130824
  5. BOCEPREVIR [Suspect]
     Active Substance: BOCEPREVIR
     Dosage: 4 CAPSULES, TID
     Route: 048
     Dates: start: 20130911, end: 20140209
  6. RIBAVIRIN. [Suspect]
     Active Substance: RIBAVIRIN
     Dosage: 2 DF, QAM
     Route: 048
     Dates: start: 20130711, end: 20130829
  7. RIBAVIRIN. [Suspect]
     Active Substance: RIBAVIRIN
     Dosage: 1 DF, QAM
     Route: 048
     Dates: start: 20130930, end: 20140209
  8. NEXIUM [Concomitant]
     Active Substance: ESOMEPRAZOLE MAGNESIUM
     Indication: GASTRITIS
     Dosage: 40 MG DAIY, BID
     Route: 048
     Dates: start: 20130823, end: 20130829
  9. BOCEPREVIR [Suspect]
     Active Substance: BOCEPREVIR
     Dosage: 4 CAPSULES, BID
     Route: 048
     Dates: start: 20130830, end: 20130830
  10. RIBAVIRIN. [Suspect]
     Active Substance: RIBAVIRIN
     Indication: CHRONIC HEPATITIS C
     Dosage: 3 DF, ONCE
     Route: 048
     Dates: start: 20130710, end: 20130710
  11. RIBAVIRIN. [Suspect]
     Active Substance: RIBAVIRIN
     Dosage: 3 DF, QPM
     Route: 048
     Dates: start: 20130711, end: 20130828
  12. IBERET FOLIC [Concomitant]
     Indication: ROUTINE HEALTH MAINTENANCE
     Dosage: TOTAL DAILY DOSE: 1 TABLET, QD
     Route: 048
     Dates: start: 201206
  13. RIBAVIRIN. [Suspect]
     Active Substance: RIBAVIRIN
     Dosage: 1 DF, QPM
     Route: 048
     Dates: start: 20130910, end: 20130929
  14. RIBAVIRIN. [Suspect]
     Active Substance: RIBAVIRIN
     Dosage: 2 DF, QPM
     Route: 048
     Dates: start: 20130930, end: 20140209
  15. PEGINTERFERON ALFA-2A [Suspect]
     Active Substance: PEGINTERFERON ALFA-2A
     Indication: CHRONIC HEPATITIS C
     Dosage: 180 MICROGRAM, QW
     Route: 058
     Dates: start: 20130710, end: 20140131
  16. EVENING PRIMROSE OIL [Concomitant]
     Active Substance: EVENING PRIMROSE OIL
     Indication: ROUTINE HEALTH MAINTENANCE
     Dosage: TOTAL DAILY DOSE: 1 CAPSULE, QD
     Route: 048
     Dates: start: 201206
  17. FERROUS SULFATE [Concomitant]
     Active Substance: FERROUS SULFATE\FERROUS SULFATE, DRIED
     Indication: ANAEMIA PROPHYLAXIS
     Dosage: TOTAL DAILY DOSE: 200 MG, QD
     Route: 048
     Dates: start: 20130805
  18. RIBAVIRIN. [Suspect]
     Active Substance: RIBAVIRIN
     Dosage: 2 DF, QAM
     Route: 048
     Dates: start: 20130905, end: 20130908
  19. RIBAVIRIN. [Suspect]
     Active Substance: RIBAVIRIN
     Dosage: 2 DF, QAM
     Route: 048
     Dates: start: 20130910, end: 20130929
  20. GLUCOSAMINE [Concomitant]
     Active Substance: GLUCOSAMINE
     Indication: ROUTINE HEALTH MAINTENANCE
     Dosage: TOTAL DAILY DOSE: 500 MG, QD
     Route: 048
     Dates: start: 201006
  21. BOCEPREVIR [Suspect]
     Active Substance: BOCEPREVIR
     Dosage: 4 CAPSULES, TID
     Route: 048
     Dates: start: 20130826, end: 20130829
  22. RIBAVIRIN. [Suspect]
     Active Substance: RIBAVIRIN
     Dosage: 1 DF, QAM
     Route: 048
     Dates: start: 20130830, end: 20130830
  23. RIBAVIRIN. [Suspect]
     Active Substance: RIBAVIRIN
     Dosage: 1 DF, QPM
     Route: 048
     Dates: start: 20130829, end: 20130829
  24. RIBAVIRIN. [Suspect]
     Active Substance: RIBAVIRIN
     Dosage: 2 DF, QPM
     Route: 048
     Dates: start: 20130909, end: 20130909
  25. GAVISCON LIQUID ANTACID [Concomitant]
     Indication: GASTRITIS
     Dosage: 15 ML DAILY, PRN
     Route: 048
     Dates: start: 20130823

REACTIONS (1)
  - Gastroenteritis [Recovered/Resolved]

NARRATIVE: CASE EVENT DATE: 20130829
